FAERS Safety Report 12060389 (Version 1)
Quarter: 2016Q1

REPORT INFORMATION
  Report Type: Spontaneous
  Country: US (occurrence: US)
  Receive Date: 20160210
  Receipt Date: 20160210
  Transmission Date: 20160526
  Serious: No
  Sender: FDA-Public Use
  Company Number: US-BIOGEN-2016BI00179744

PATIENT

DRUGS (1)
  1. TYSABRI [Suspect]
     Active Substance: NATALIZUMAB
     Indication: MULTIPLE SCLEROSIS

REACTIONS (7)
  - Dysgeusia [Unknown]
  - Pain [Unknown]
  - Chest pain [Unknown]
  - Nausea [Unknown]
  - Malaise [Unknown]
  - Adverse reaction [Unknown]
  - Gastrointestinal disorder [Unknown]
